FAERS Safety Report 17267268 (Version 1)
Quarter: 2020Q1

REPORT INFORMATION
  Report Type: Spontaneous
  Country: US (occurrence: US)
  Receive Date: 20200114
  Receipt Date: 20200114
  Transmission Date: 20200409
  Serious: Yes (Hospitalization)
  Sender: FDA-Public Use
  Company Number: None

PATIENT
  Age: 37 Year
  Sex: Female
  Weight: 54 kg

DRUGS (2)
  1. INDOMETHACIN. [Concomitant]
     Active Substance: INDOMETHACIN
  2. EMGALITY [Suspect]
     Active Substance: GALCANEZUMAB-GNLM
     Indication: CLUSTER HEADACHE
     Dosage: ?          OTHER FREQUENCY:ONCE PER MONTH;?
     Route: 030
     Dates: start: 20191220, end: 20191220

REACTIONS (13)
  - Confusional state [None]
  - Anxiety [None]
  - Panic attack [None]
  - Cluster headache [None]
  - Dyspepsia [None]
  - Fatigue [None]
  - Nightmare [None]
  - Pain [None]
  - Infrequent bowel movements [None]
  - Symptom recurrence [None]
  - Cold sweat [None]
  - Pain in extremity [None]
  - Myalgia [None]

NARRATIVE: CASE EVENT DATE: 20191220
